FAERS Safety Report 18367490 (Version 1)
Quarter: 2020Q4

REPORT INFORMATION
  Report Type: Spontaneous
  Country: DK (occurrence: DK)
  Receive Date: 20201009
  Receipt Date: 20201009
  Transmission Date: 20210114
  Serious: Yes (Other)
  Sender: FDA-Public Use
  Company Number: DK-PFIZER INC-2020384306

PATIENT
  Age: 75 Year
  Sex: Male

DRUGS (1)
  1. LYRICA [Suspect]
     Active Substance: PREGABALIN
     Dosage: UNK

REACTIONS (8)
  - Visual impairment [Unknown]
  - Dizziness [Unknown]
  - Tunnel vision [Unknown]
  - Dry mouth [Unknown]
  - Malaise [Unknown]
  - Neck pain [Unknown]
  - Diplopia [Unknown]
  - Lacrimation increased [Unknown]
